FAERS Safety Report 8341660 (Version 10)
Quarter: 2014Q2

REPORT INFORMATION
  Report Type: Spontaneous
  Country: US (occurrence: US)
  Receive Date: 20120118
  Receipt Date: 20140606
  Transmission Date: 20141212
  Serious: Yes (Death, Hospitalization)
  Sender: FDA-Public Use
  Company Number: US-JNJFOC-20120103761

PATIENT
  Age: 47 Year
  Sex: Female
  Weight: 139.71 kg

DRUGS (7)
  1. TYLENOL [Suspect]
     Indication: HEADACHE
     Route: 048
     Dates: start: 201012, end: 20110108
  2. TYLENOL [Suspect]
     Indication: BACK PAIN
     Route: 048
     Dates: start: 201012, end: 20110108
  3. HYDROCODONE APAP [Suspect]
     Indication: PAIN
     Route: 048
  4. AMBIEN [Suspect]
     Indication: INSOMNIA
     Route: 048
  5. CAFFEINE [Concomitant]
     Route: 065
  6. DIHYDROCODEINE [Concomitant]
     Route: 065
  7. HYDROCODONE [Concomitant]
     Route: 065

REACTIONS (5)
  - Toxicity to various agents [Fatal]
  - Hepatitis acute [Not Recovered/Not Resolved]
  - Hepatic steatosis [Not Recovered/Not Resolved]
  - Hepatic function abnormal [Not Recovered/Not Resolved]
  - Hepatic failure [Fatal]
